FAERS Safety Report 17763548 (Version 1)
Quarter: 2020Q2

REPORT INFORMATION
  Report Type: Spontaneous
  Country: GB (occurrence: GB)
  Receive Date: 20200509
  Receipt Date: 20200509
  Transmission Date: 20200714
  Serious: Yes (Other)
  Sender: FDA-Public Use
  Company Number: GB-TEVA-2020-GB-1232152

PATIENT
  Age: 11 Year
  Sex: Male

DRUGS (2)
  1. DESMOPRESSIN ACETATE. [Concomitant]
     Active Substance: DESMOPRESSIN ACETATE
  2. TOLTERODINE TARTRATE. [Suspect]
     Active Substance: TOLTERODINE TARTRATE
     Indication: ENURESIS
     Dosage: 1 MG
     Route: 048
     Dates: start: 2018

REACTIONS (5)
  - Emotional disorder [Recovered/Resolved with Sequelae]
  - Depressed mood [Recovered/Resolved with Sequelae]
  - Personality change [Recovered/Resolved with Sequelae]
  - Disturbance in social behaviour [Recovered/Resolved with Sequelae]
  - Crying [Recovered/Resolved with Sequelae]

NARRATIVE: CASE EVENT DATE: 2018
